FAERS Safety Report 6111562-0 (Version None)
Quarter: 2009Q1

REPORT INFORMATION
  Report Type: 
  Country: None (occurrence: None)
  Receive Date: 20090311
  Receipt Date: 20090227
  Transmission Date: 20090719
  Serious: Yes (Hospitalization)
  Sender: FDA-Public Use
  Company Number: US-BIOGENIDEC-2009BI006417

PATIENT
  Age: 57 Year
  Sex: Female
  Weight: 88 kg

DRUGS (1)
  1. AVONEX [Suspect]
     Indication: MULTIPLE SCLEROSIS
     Route: 030
     Dates: start: 20050101

REACTIONS (5)
  - BLOOD GLUCOSE INCREASED [None]
  - BLOOD PRESSURE INCREASED [None]
  - CHEST PAIN [None]
  - DRUG INEFFECTIVE [None]
  - MULTIPLE SCLEROSIS RELAPSE [None]
